FAERS Safety Report 5746026-7 (Version None)
Quarter: 2008Q2

REPORT INFORMATION
  Report Type: 
  Country: None (occurrence: None)
  Receive Date: 20080522
  Receipt Date: 20080514
  Transmission Date: 20081010
  Serious: Yes (Other)
  Sender: FDA-Public Use
  Company Number: US-BAYER-200823013NA

PATIENT
  Age: 50 Year
  Sex: Female
  Weight: 65 kg

DRUGS (2)
  1. MIRENA [Suspect]
     Indication: DYSMENORRHOEA
     Route: 015
     Dates: start: 20080124
  2. SARAFEM [Concomitant]
     Indication: DRUG USE FOR UNKNOWN INDICATION

REACTIONS (5)
  - CERVICAL DYSPLASIA [None]
  - ENDOMETRITIS [None]
  - SMEAR CERVIX ABNORMAL [None]
  - UTERINE SPASM [None]
  - UTERINE TENDERNESS [None]
